FAERS Safety Report 8782751 (Version 1)
Quarter: 2012Q4

REPORT INFORMATION
  Report Type: 
  Country: CA (occurrence: CA)
  Receive Date: 20120913
  Receipt Date: 20120913
  Transmission Date: 20130627
  Serious: Yes (Death)
  Sender: FDA-Public Use
  Company Number: CA-B.I. PHARMACEUTICALS,INC./RIDGEFIELD-2012-CN-01874CN

PATIENT
  Age: 70 Year
  Sex: Female

DRUGS (1)
  1. PRADAX [Suspect]
     Dosage: 220 mg

REACTIONS (2)
  - Respiratory failure [Fatal]
  - Epistaxis [Unknown]
